FAERS Safety Report 7985940-9 (Version None)
Quarter: 2011Q4

REPORT INFORMATION
  Report Type: 
  Country: None (occurrence: None)
  Receive Date: 20111216
  Receipt Date: 20111209
  Transmission Date: 20120403
  Serious: Yes (Hospitalization)
  Sender: FDA-Public Use
  Company Number: US-B.I. PHARMACEUTICALS,INC./RIDGEFIELD-2011-BP-23988BP

PATIENT
  Age: 76 Year
  Sex: Male

DRUGS (6)
  1. ALPRAZOLAM [Concomitant]
     Route: 048
  2. PRADAXA [Suspect]
     Indication: ATRIAL FIBRILLATION
     Dosage: 300 MG
     Route: 048
     Dates: start: 20110907, end: 20110915
  3. LOTREL [Concomitant]
  4. DILTIAZEM HCL [Suspect]
     Indication: ATRIAL FIBRILLATION
     Dates: start: 20110914, end: 20110916
  5. CARVEDILOL [Concomitant]
     Dosage: 25 MG
     Route: 048
  6. OMEPRAZOLE [Concomitant]
     Dosage: 80 MG
     Route: 048

REACTIONS (5)
  - LIP SWELLING [None]
  - WHEEZING [None]
  - RASH [None]
  - URTICARIA [None]
  - ANGIOEDEMA [None]
